FAERS Safety Report 5212831-9 (Version None)
Quarter: 2007Q1

REPORT INFORMATION
  Report Type: 
  Country: None (occurrence: None)
  Receive Date: 20070119
  Receipt Date: 20070108
  Transmission Date: 20070707
  Serious: Yes (Hospitalization)
  Sender: FDA-Public Use
  Company Number: US-JNJFOC-20070101950

PATIENT
  Sex: Female

DRUGS (7)
  1. DURAGESIC-100 [Suspect]
     Route: 062
  2. DURAGESIC-100 [Suspect]
     Indication: PAIN
     Route: 062
  3. FENTANYL TRANSDERMAL SYSTEM [Suspect]
     Indication: PAIN
     Route: 062
  4. UNSPECIFIED MEDICATION [Suspect]
     Indication: DIABETIC NEUROPATHY
     Route: 048
  5. VICODIN [Concomitant]
     Indication: PAIN
     Route: 048
  6. TRIAMTERENE [Concomitant]
     Indication: FLUID RETENTION
     Route: 048
  7. GLUCOPHAGE [Concomitant]
     Indication: DIABETES MELLITUS
     Route: 048

REACTIONS (13)
  - ANXIETY [None]
  - APPLICATION SITE RASH [None]
  - BLOOD GLUCOSE ABNORMAL [None]
  - CHILLS [None]
  - COLD SWEAT [None]
  - DIABETIC NEUROPATHY [None]
  - DYSARTHRIA [None]
  - INADEQUATE ANALGESIA [None]
  - MALAISE [None]
  - RESTLESSNESS [None]
  - SOMNOLENCE [None]
  - SPINAL COLUMN STENOSIS [None]
  - SWELLING [None]
